FAERS Safety Report 23893560 (Version 1)
Quarter: 2024Q2

REPORT INFORMATION
  Report Type: Spontaneous
  Country: US (occurrence: None)
  Receive Date: 20240524
  Receipt Date: 20240524
  Transmission Date: 20240716
  Serious: No
  Sender: FDA-Public Use
  Company Number: US-ROCHE-3414130

PATIENT
  Age: 52 Year
  Sex: Female
  Weight: 69.008 kg

DRUGS (5)
  1. ACTEMRA [Suspect]
     Active Substance: TOCILIZUMAB
     Indication: Product used for unknown indication
     Dosage: STRENGTH: 162 MG/0.9 ML
     Route: 058
  2. ACTEMRA [Suspect]
     Active Substance: TOCILIZUMAB
  3. ACTEMRA [Suspect]
     Active Substance: TOCILIZUMAB
     Indication: Product used for unknown indication
     Dosage: STRENGTH: 162 MG/0.9 ML, ONGOING; NO
     Route: 058
  4. ACTEMRA [Suspect]
     Active Substance: TOCILIZUMAB
  5. ACTEMRA [Suspect]
     Active Substance: TOCILIZUMAB

REACTIONS (8)
  - Underdose [Unknown]
  - Accidental exposure to product [Unknown]
  - Circumstance or information capable of leading to device use error [Unknown]
  - Intentional product misuse [Unknown]
  - Device difficult to use [Unknown]
  - No adverse event [Unknown]
  - Product complaint [Unknown]
  - Product storage error [Unknown]

NARRATIVE: CASE EVENT DATE: 20230828
